FAERS Safety Report 25460364 (Version 2)
Quarter: 2025Q2

REPORT INFORMATION
  Report Type: Spontaneous
  Country: US (occurrence: US)
  Receive Date: 20250620
  Receipt Date: 20250630
  Transmission Date: 20250716
  Serious: No
  Sender: IPSEN BIOPHARMACEUTICALS, INC.
  Company Number: US-IPSEN Group, Research and Development-2025-14357

PATIENT
  Age: 64 Year
  Sex: Female

DRUGS (1)
  1. IQIRVO [Suspect]
     Active Substance: ELAFIBRANOR
     Indication: Primary biliary cholangitis
     Route: 065
     Dates: start: 20250115

REACTIONS (9)
  - Myalgia [Unknown]
  - Micturition urgency [Unknown]
  - Burning sensation [Unknown]
  - Initial insomnia [Unknown]
  - Back pain [Unknown]
  - Dry mouth [Unknown]
  - Dysphonia [Unknown]
  - Skin irritation [Unknown]
  - Skin exfoliation [Unknown]

NARRATIVE: CASE EVENT DATE: 20250421
